FAERS Safety Report 7906092-7 (Version None)
Quarter: 2011Q4

REPORT INFORMATION
  Report Type: 
  Country: None (occurrence: None)
  Receive Date: 20111110
  Receipt Date: 20111108
  Transmission Date: 20120403
  Serious: Yes (Death, Hospitalization)
  Sender: FDA-Public Use
  Company Number: US-BRISTOL-MYERS SQUIBB COMPANY-16058505

PATIENT
  Age: 54 Year
  Sex: Male
  Weight: 66 kg

DRUGS (6)
  1. ERBITUX [Suspect]
     Indication: NON-SMALL CELL LUNG CANCER
     Dosage: COURSES:18 LAST DOSE ON 22AUG2011
     Dates: start: 20110411
  2. ATRIPLA [Suspect]
  3. FENTANYL-100 [Suspect]
  4. CARBOPLATIN [Suspect]
     Indication: NON-SMALL CELL LUNG CANCER
     Dosage: LAST DOSE ON 08AUG2011 COURSES:18
     Dates: start: 20110411
  5. TAXOL [Suspect]
     Indication: NON-SMALL CELL LUNG CANCER
     Dosage: COURSES:18 LAST DOSE ON 08AUG2011
     Dates: start: 20110411
  6. LORTAB [Suspect]

REACTIONS (3)
  - VOMITING [None]
  - DEATH [None]
  - NAUSEA [None]
